FAERS Safety Report 7124289-3 (Version None)
Quarter: 2010Q4

REPORT INFORMATION
  Report Type: 
  Country: None (occurrence: None)
  Receive Date: 20101126
  Receipt Date: 20101116
  Transmission Date: 20110411
  Serious: Yes (Life-Threatening, Hospitalization, Other)
  Sender: FDA-Public Use
  Company Number: PHHO2010GT17328

PATIENT
  Sex: Male
  Weight: 91 kg

DRUGS (4)
  1. ENALAPRIL MALEATE [Suspect]
     Indication: CARDIAC FAILURE CHRONIC
     Dosage: NO TREATMENT
  2. BLINDED LCZ696 LCZ+TAB+CF [Suspect]
     Indication: CARDIAC FAILURE CHRONIC
     Dosage: NO TREATMENT
  3. BLINDED NO TREATMENT RECEIVED NOMED [Suspect]
     Indication: CARDIAC FAILURE CHRONIC
     Dosage: NO TREATMENT
  4. LCZ696 [Suspect]
     Indication: CARDIAC FAILURE CHRONIC
     Dosage: 200 MG, BID
     Dates: start: 20101103, end: 20101116

REACTIONS (3)
  - ANURIA [None]
  - GASTROINTESTINAL INFECTION [None]
  - RENAL FAILURE ACUTE [None]
